FAERS Safety Report 7825002-4 (Version None)
Quarter: 2011Q4

REPORT INFORMATION
  Report Type: 
  Country: None (occurrence: None)
  Receive Date: 20111019
  Receipt Date: 20111014
  Transmission Date: 20120403
  Serious: Yes (Hospitalization, Disabling)
  Sender: FDA-Public Use
  Company Number: US-MERCK-1108USA01353

PATIENT
  Age: 55 Year
  Sex: Female

DRUGS (2)
  1. FOSAMAX [Suspect]
     Indication: OSTEOPENIA
     Route: 048
     Dates: start: 20030101, end: 20090701
  2. ONE-A-DAY ESSENTIAL VITAMINS [Concomitant]
     Route: 065

REACTIONS (4)
  - HERPES ZOSTER [None]
  - MENISCUS LESION [None]
  - TOOTH DISORDER [None]
  - FEMUR FRACTURE [None]
